FAERS Safety Report 11693214 (Version 1)
Quarter: 2015Q4

REPORT INFORMATION
  Report Type: Spontaneous
  Country: TR (occurrence: TR)
  Receive Date: 20151103
  Receipt Date: 20151103
  Transmission Date: 20160304
  Serious: Yes (Other)
  Sender: FDA-Public Use
  Company Number: TR-GLAXOSMITHKLINE-TR2015GSK156569

PATIENT
  Age: 27 Year
  Sex: Female

DRUGS (1)
  1. LAMOTRIGINE. [Suspect]
     Active Substance: LAMOTRIGINE
     Indication: PRODUCT USED FOR UNKNOWN INDICATION

REACTIONS (8)
  - Antinuclear antibody positive [Recovered/Resolved]
  - Butterfly rash [Unknown]
  - Arthralgia [Unknown]
  - Swelling [Unknown]
  - Cutaneous lupus erythematosus [Unknown]
  - Double stranded DNA antibody positive [Recovered/Resolved]
  - Systemic lupus erythematosus [Recovered/Resolved]
  - Myalgia [Unknown]
